FAERS Safety Report 13639103 (Version 1)
Quarter: 2017Q2

REPORT INFORMATION
  Report Type: Spontaneous
  Country: US (occurrence: US)
  Receive Date: 20170609
  Receipt Date: 20170609
  Transmission Date: 20170830
  Serious: Yes (Life-Threatening, Other)
  Sender: FDA-Public Use
  Company Number: US-BAUSCH-BL-2017-018328

PATIENT
  Age: 85 Year
  Sex: Female

DRUGS (1)
  1. DILTIAZEM. [Suspect]
     Active Substance: DILTIAZEM
     Indication: HEART RATE INCREASED
     Dosage: 20 MG IV PUSH
     Route: 042

REACTIONS (4)
  - Nodal rhythm [Unknown]
  - Atrioventricular block [Unknown]
  - Atrioventricular dissociation [Unknown]
  - Atrial tachycardia [Unknown]
